FAERS Safety Report 6656436-1 (Version None)
Quarter: 2010Q1

REPORT INFORMATION
  Report Type: 
  Country: None (occurrence: None)
  Receive Date: 20100326
  Receipt Date: 20100326
  Transmission Date: 20100710
  Serious: No
  Sender: FDA-Public Use
  Company Number: None

PATIENT
  Age: 71 Year
  Sex: Male
  Weight: 109.7705 kg

DRUGS (1)
  1. BUDESONIDE [Suspect]
     Dosage: 0.5MG BID NEB
     Dates: start: 20100101

REACTIONS (2)
  - BRONCHOSPASM [None]
  - DYSPNOEA [None]
